FAERS Safety Report 9286848 (Version 2)
Quarter: 2013Q2

REPORT INFORMATION
  Report Type: Spontaneous
  Country: US (occurrence: US)
  Receive Date: 20130513
  Receipt Date: 20130520
  Transmission Date: 20140414
  Serious: No
  Sender: FDA-Public Use
  Company Number: US-TEVA-404384USA

PATIENT
  Sex: Female
  Weight: 79 kg

DRUGS (9)
  1. AMRIX [Suspect]
     Indication: MUSCLE SPASMS
  2. OXYCONTIN [Concomitant]
     Dosage: 2 TABLETS IN AM AND 2 TABLETS IN PM
  3. FIORCET 50-325 [Concomitant]
     Indication: MUSCLE SPASMS
     Dosage: 2 TABLETS Q6 HRS/ 3-4 TIMES PER DAY
  4. FIORCET 50-325 [Concomitant]
     Indication: HEADACHE
  5. CYMBALTA [Concomitant]
     Indication: FIBROMYALGIA
     Dosage: 60 MILLIGRAM DAILY;
  6. GABAPENTIN 1A FARMA [Concomitant]
     Indication: NEURALGIA
     Dosage: 100 MILLIGRAM DAILY;
  7. FUROSEMIDE [Concomitant]
     Indication: OEDEMA
     Dosage: 120 MILLIGRAM DAILY;
     Route: 048
  8. VITAMIN D [Concomitant]
     Dosage: DAILY
  9. SENNACOT/DOCUSATE SODIUM 50 MG/ SENNOSIDE 8.6 MG [Concomitant]
     Dosage: 6 TABLETS/DAY

REACTIONS (2)
  - Intentional overdose [Unknown]
  - Drug ineffective [Unknown]
